FAERS Safety Report 7189873-X (Version None)
Quarter: 2010Q4

REPORT INFORMATION
  Report Type: 
  Country: None (occurrence: None)
  Receive Date: 20101223
  Receipt Date: 20101213
  Transmission Date: 20110411
  Serious: Yes (Hospitalization)
  Sender: FDA-Public Use
  Company Number: US-ELI_LILLY_AND_COMPANY-US201009005644

PATIENT
  Sex: Female
  Weight: 48.526 kg

DRUGS (1)
  1. FORTEO [Suspect]
     Indication: OSTEOPOROSIS
     Dosage: 20 UG, DAILY (1/D)
     Route: 058
     Dates: start: 20090731

REACTIONS (5)
  - ACCIDENTAL OVERDOSE [None]
  - AMNESIA [None]
  - ANAESTHETIC COMPLICATION NEUROLOGICAL [None]
  - PAIN [None]
  - SKIN ULCER [None]
